FAERS Safety Report 7816487-8 (Version None)
Quarter: 2011Q4

REPORT INFORMATION
  Report Type: 
  Country: None (occurrence: None)
  Receive Date: 20111017
  Receipt Date: 20111005
  Transmission Date: 20120403
  Serious: Yes (Life-Threatening)
  Sender: FDA-Public Use
  Company Number: JP-JNJFOC-20111001225

PATIENT
  Age: 46 Year
  Sex: Male
  Weight: 90 kg

DRUGS (11)
  1. REMICADE [Suspect]
     Indication: CROHN'S DISEASE
     Route: 042
     Dates: start: 20110831
  2. PENTASA [Concomitant]
     Route: 048
  3. BASEN [Concomitant]
     Route: 048
  4. AMARYL [Concomitant]
     Route: 048
  5. EPADEL [Concomitant]
     Route: 048
  6. RESTAMIN [Concomitant]
     Route: 065
  7. LAC-B [Concomitant]
     Route: 048
  8. IMURAN [Concomitant]
     Route: 048
  9. LIPIDIL [Concomitant]
     Route: 048
  10. YAKUBAN [Concomitant]
     Route: 065
  11. FAMOTIDINE [Concomitant]
     Route: 048

REACTIONS (2)
  - NEPHRITIS [None]
  - PYONEPHROSIS [None]
